FAERS Safety Report 10166944 (Version 1)
Quarter: 2014Q2

REPORT INFORMATION
  Report Type: Spontaneous
  Country: DE (occurrence: DE)
  Receive Date: 20140512
  Receipt Date: 20140512
  Transmission Date: 20141212
  Serious: Yes (Life-Threatening)
  Sender: FDA-Public Use
  Company Number: CHPA2014DE006287

PATIENT
  Sex: Male

DRUGS (2)
  1. NICOTINELL KAUGUMMI [Suspect]
     Indication: SMOKING CESSATION THERAPY
     Dosage: UNK
     Route: 048
  2. NICOTINELL KAUGUMMI [Suspect]
     Indication: OFF LABEL USE

REACTIONS (3)
  - Neoplasm malignant [Unknown]
  - Off label use [None]
  - Lip and/or oral cavity cancer [None]
